FAERS Safety Report 24772933 (Version 3)
Quarter: 2025Q1

REPORT INFORMATION
  Report Type: Report from Study
  Country: US (occurrence: US)
  Receive Date: 20241225
  Receipt Date: 20250127
  Transmission Date: 20250409
  Serious: Yes (Death, Other)
  Sender: ACADIA PHARMACEUTICALS
  Company Number: US-ACADIA PHARMACEUTICALS INC.-ACA-2024-PIM-008339

PATIENT
  Sex: Male

DRUGS (20)
  1. NUPLAZID [Suspect]
     Active Substance: PIMAVANSERIN TARTRATE
     Indication: Parkinson^s disease psychosis
     Dosage: 34 MILLIGRAM, QD
     Route: 048
  2. NUPLAZID [Suspect]
     Active Substance: PIMAVANSERIN TARTRATE
     Dosage: 34 MILLIGRAM, QD
     Route: 048
  3. ATROPINE OPHTHALMIC [Concomitant]
     Route: 060
  4. BISACODYL [Concomitant]
     Active Substance: BISACODYL
     Indication: Constipation
     Route: 054
  5. HALOPERIDOL [Concomitant]
     Active Substance: HALOPERIDOL
     Indication: Agitation
     Route: 030
  6. ALBUTEROL\IPRATROPIUM [Concomitant]
     Active Substance: ALBUTEROL\IPRATROPIUM
     Indication: Wheezing
     Dosage: 3 MILLILITER, QID (0.5-2.5 MG/3ML) INHALATION SOLUTION)
     Route: 045
  7. ALBUTEROL\IPRATROPIUM [Concomitant]
     Active Substance: ALBUTEROL\IPRATROPIUM
     Indication: Dyspnoea
  8. LORAZEPAM [Concomitant]
     Active Substance: LORAZEPAM
     Route: 048
  9. ATIVAN [Concomitant]
     Active Substance: LORAZEPAM
     Indication: Agitation
     Route: 042
  10. MORPHINE [Concomitant]
     Active Substance: MORPHINE
     Route: 048
  11. MORPHINE [Concomitant]
     Active Substance: MORPHINE
     Route: 048
  12. MORPHINE [Concomitant]
     Active Substance: MORPHINE
     Route: 048
  13. MORPHINE [Concomitant]
     Active Substance: MORPHINE
     Indication: Pain
     Route: 042
  14. SCOPOLAMINE [Concomitant]
     Active Substance: SCOPOLAMINE
     Indication: Nausea
     Route: 062
  15. SCOPOLAMINE [Concomitant]
     Active Substance: SCOPOLAMINE
     Indication: Vomiting
  16. FLUTICASONE [Concomitant]
     Active Substance: FLUTICASONE
     Dosage: 2 DOSAGE FORM, QD
     Route: 045
  17. LISINOPRIL AND HYDROCHLOROTHIAZIDE [Concomitant]
     Active Substance: HYDROCHLOROTHIAZIDE\LISINOPRIL
     Dosage: 1 DOSAGE FORM (20-25 MG), QD, 3 REFILLS
     Route: 048
  18. LORATADINE [Concomitant]
     Active Substance: LORATADINE
     Dosage: 10 MILLIGRAM, QD (PRN) 1 REFILL
     Route: 048
  19. QUETIAPINE [Concomitant]
     Active Substance: QUETIAPINE
     Dosage: 25 MILLIGRAM, QD (AT BED TIME) 3 REFILLS
     Route: 048
  20. TAMSULOSIN [Concomitant]
     Active Substance: TAMSULOSIN
     Dosage: 0.8 MILLIGRAM, QD (2, 3 REFILLS)
     Route: 048

REACTIONS (11)
  - Parkinson^s disease [Fatal]
  - Dementia [Fatal]
  - Haemorrhage [Fatal]
  - Fall [Fatal]
  - Failure to thrive [Fatal]
  - Cognitive disorder [Fatal]
  - Hallucination [Unknown]
  - Hallucination, visual [Unknown]
  - Intentional dose omission [Unknown]
  - Loss of personal independence in daily activities [Unknown]
  - Drug ineffective [Unknown]
